FAERS Safety Report 16004020 (Version 2)
Quarter: 2019Q1

REPORT INFORMATION
  Report Type: Spontaneous
  Country: BE (occurrence: BE)
  Receive Date: 20190226
  Receipt Date: 20190226
  Transmission Date: 20190418
  Serious: Yes (Hospitalization)
  Sender: FDA-Public Use
  Company Number: BE-ACCORD-108823

PATIENT
  Age: 56 Year
  Sex: Female
  Weight: 67 kg

DRUGS (9)
  1. CALCIUM CARBONATE/COLECALCIFEROL [Concomitant]
     Indication: OSTEOPOROSIS
     Route: 048
  2. MS CONTIN [Concomitant]
     Active Substance: MORPHINE SULFATE
     Indication: PAIN
     Route: 048
  3. MS DIRECT [Concomitant]
     Active Substance: MORPHINE SULFATE
     Indication: PAIN
     Dosage: SI BESOIN
     Route: 048
  4. XGEVA [Concomitant]
     Active Substance: DENOSUMAB
     Dates: start: 20120813
  5. GEMCITABINE/GEMCITABINE HYDROCHLORIDE [Suspect]
     Active Substance: GEMCITABINE\GEMCITABINE HYDROCHLORIDE
     Indication: METASTATIC NEOPLASM
     Dosage: 1300 MG DAY1 - DAY8 ONCE EVERY 3 WEEKS. RECEIVED A SINGLE DOSE
     Route: 042
     Dates: start: 20120904, end: 20120904
  6. EUTHYROX [Concomitant]
     Active Substance: LEVOTHYROXINE SODIUM
     Indication: HYPOTHYROIDISM
  7. CORTISONE [Concomitant]
     Active Substance: CORTISONE\HYDROCORTISONE
     Indication: PAIN
  8. CISPLATIN. [Concomitant]
     Active Substance: CISPLATIN
     Indication: METASTATIC NEOPLASM
     Route: 042
     Dates: start: 20120818, end: 20120904
  9. CISPLATIN. [Concomitant]
     Active Substance: CISPLATIN
     Indication: METASTATIC NEOPLASM
     Route: 042
     Dates: start: 20120818, end: 20120904

REACTIONS (5)
  - Chest pain [Recovered/Resolved]
  - Sense of oppression [Recovered/Resolved]
  - Paraesthesia [Recovered/Resolved]
  - Rash [Recovered/Resolved]
  - Pruritus [Recovered/Resolved]

NARRATIVE: CASE EVENT DATE: 20120904
